FAERS Safety Report 7283081-X (Version None)
Quarter: 2011Q1

REPORT INFORMATION
  Report Type: 
  Country: None (occurrence: None)
  Receive Date: 20110209
  Receipt Date: 20110127
  Transmission Date: 20110831
  Serious: Yes (Other)
  Sender: FDA-Public Use
  Company Number: BR-ROCHE-734097

PATIENT
  Sex: Female
  Weight: 57 kg

DRUGS (17)
  1. TOCILIZUMAB [Suspect]
     Route: 042
     Dates: start: 20100813
  2. DIOSMIN [Concomitant]
  3. CITALOPRAM [Concomitant]
  4. ACETAMINOPHEN [Concomitant]
     Indication: PAIN
     Dosage: DRUG REPORTED AS ACETOAMINOPHEN
  5. TOCILIZUMAB [Suspect]
     Indication: RHEUMATOID ARTHRITIS
     Route: 042
  6. HEPARIN SODIUM [Suspect]
     Route: 065
  7. CALCIUM CARBONATE [Concomitant]
  8. FOLIC ACID [Concomitant]
     Dosage: EVERY THURSDAY
  9. DIPYRONE [Concomitant]
     Indication: PAIN
  10. OMEPRAZOLE [Concomitant]
  11. CLONAZEPAM [Concomitant]
  12. ATENOLOL [Concomitant]
  13. ALENDRONATE SODIUM [Concomitant]
     Dosage: ONE TABLET EVERY MONDAY UNDER FASTING
  14. TOCILIZUMAB [Suspect]
     Route: 042
     Dates: start: 20101025
  15. PREDNISONE [Concomitant]
  16. FUROSEMIDE [Concomitant]
  17. METHOTREXATE [Concomitant]
     Dosage: 3 TABLET PER WEEK (TUESDAY)

REACTIONS (4)
  - LIMB INJURY [None]
  - WOUND INFECTION [None]
  - THROMBOSIS [None]
  - FALL [None]
